FAERS Safety Report 13245265 (Version 3)
Quarter: 2017Q1

REPORT INFORMATION
  Report Type: Spontaneous
  Country: US (occurrence: US)
  Receive Date: 20170217
  Receipt Date: 20170322
  Transmission Date: 20170428
  Serious: Yes (Hospitalization)
  Sender: FDA-Public Use
  Company Number: US-ACTELION-A-US2017-149940

PATIENT
  Age: 57 Year
  Sex: Male

DRUGS (1)
  1. OPSUMIT [Suspect]
     Active Substance: MACITENTAN
     Indication: PULMONARY ARTERIAL HYPERTENSION
     Dosage: 10 MG, UNK
     Route: 048
     Dates: start: 20161028

REACTIONS (6)
  - Cor pulmonale [Unknown]
  - Chronic obstructive pulmonary disease [Unknown]
  - Pulmonary arterial hypertension [Unknown]
  - Respiratory failure [Unknown]
  - Oxygen saturation decreased [Unknown]
  - Anaemia [Unknown]
